FAERS Safety Report 16799129 (Version 5)
Quarter: 2019Q4

REPORT INFORMATION
  Report Type: Spontaneous
  Country: US (occurrence: US)
  Receive Date: 20190912
  Receipt Date: 20191224
  Transmission Date: 20200122
  Serious: Yes (Death, Other)
  Sender: FDA-Public Use
  Company Number: US-PFIZER INC-2019390762

PATIENT
  Age: 78 Year
  Sex: Female
  Weight: 46.72 kg

DRUGS (6)
  1. VYNDAQEL [Suspect]
     Active Substance: TAFAMIDIS MEGLUMINE
     Indication: AMYLOIDOSIS
     Dosage: 80 MG, 1X/DAY
     Route: 048
     Dates: start: 20190821, end: 20190904
  2. METOPROLOL. [Concomitant]
     Active Substance: METOPROLOL
     Indication: BLOOD PRESSURE ABNORMAL
     Dosage: 50 MG, DAILY
     Route: 048
  3. ELIQUIS [Concomitant]
     Active Substance: APIXABAN
     Indication: ANTICOAGULANT THERAPY
     Dosage: 2.5 MG, 2X/DAY
     Route: 048
  4. VYNDAQEL [Suspect]
     Active Substance: TAFAMIDIS MEGLUMINE
     Indication: CARDIAC AMYLOIDOSIS
  5. BENADRYL [Suspect]
     Active Substance: DIPHENHYDRAMINE HYDROCHLORIDE
     Dosage: 25 MG, 1X/DAY (AM)
     Route: 048
  6. VYNDAQEL [Suspect]
     Active Substance: TAFAMIDIS MEGLUMINE
     Indication: PLASMA CELL MYELOMA
     Dosage: 20 MG, 4X/DAY
     Route: 048
     Dates: start: 2019

REACTIONS (9)
  - Amyloidosis [Fatal]
  - Pulse absent [Fatal]
  - Cardiac arrest [Fatal]
  - Rash [Recovered/Resolved]
  - Blood pressure abnormal [Fatal]
  - Chest discomfort [Unknown]
  - Disease progression [Fatal]
  - Unresponsive to stimuli [Fatal]
  - Urticaria [Unknown]

NARRATIVE: CASE EVENT DATE: 2019
